FAERS Safety Report 8024372-4 (Version None)
Quarter: 2012Q1

REPORT INFORMATION
  Report Type: 
  Country: None (occurrence: None)
  Receive Date: 20120105
  Receipt Date: 20120105
  Transmission Date: 20120608
  Serious: Yes (Other)
  Sender: FDA-Public Use
  Company Number: None

PATIENT
  Age: 47 Year
  Sex: Female
  Weight: 51.709 kg

DRUGS (1)
  1. INFED [Suspect]
     Indication: ANAEMIA
     Dosage: INFED 50MG
     Route: 042
     Dates: start: 20110927, end: 20111025

REACTIONS (3)
  - HEPATIC ENZYME INCREASED [None]
  - OCCULT BLOOD POSITIVE [None]
  - HEPATIC SIDEROSIS [None]
